FAERS Safety Report 8442838-X (Version None)
Quarter: 2012Q2

REPORT INFORMATION
  Report Type: 
  Country: None (occurrence: None)
  Receive Date: 20120615
  Receipt Date: 20110706
  Transmission Date: 20120825
  Serious: No
  Sender: FDA-Public Use
  Company Number: US-BAUSCH-2011BL004576

PATIENT
  Age: 90 Year
  Sex: Female

DRUGS (2)
  1. CYCLOPENTOLATE HYDROCHLORIDE [Suspect]
     Indication: UVEITIS
     Route: 047
     Dates: start: 20110628, end: 20110702
  2. CYCLOPENTOLATE HYDROCHLORIDE [Suspect]
     Indication: VITREOUS ADHESIONS
     Route: 047
     Dates: start: 20110628, end: 20110702

REACTIONS (5)
  - ATAXIA [None]
  - FLATULENCE [None]
  - DIARRHOEA [None]
  - ABDOMINAL DISCOMFORT [None]
  - EYE IRRITATION [None]
